FAERS Safety Report 5712170-3 (Version None)
Quarter: 2008Q2

REPORT INFORMATION
  Report Type: 
  Country: None (occurrence: None)
  Receive Date: 20080422
  Receipt Date: 20080418
  Transmission Date: 20081010
  Serious: Yes (Hospitalization, Other)
  Sender: FDA-Public Use
  Company Number: US-BAYER-200813980NA

PATIENT
  Age: 37 Year
  Sex: Female
  Weight: 74 kg

DRUGS (2)
  1. MIRENA [Suspect]
     Indication: CONTRACEPTION
     Route: 015
     Dates: start: 20080124, end: 20080207
  2. WELLBUTRIN [Concomitant]
     Indication: ANXIETY
     Dosage: TOTAL DAILY DOSE: 300 MG
     Route: 048

REACTIONS (2)
  - PROCEDURAL PAIN [None]
  - UTERINE RUPTURE [None]
